FAERS Safety Report 9364922 (Version 1)
Quarter: 2013Q2

REPORT INFORMATION
  Report Type: Report from Study
  Country: US (occurrence: US)
  Receive Date: 20130624
  Receipt Date: 20130624
  Transmission Date: 20140414
  Serious: Yes (Other)
  Sender: FDA-Public Use
  Company Number: US-ABBOTT-13P-163-1105902-00

PATIENT
  Sex: Female

DRUGS (2)
  1. HUMIRA [Suspect]
     Indication: RHEUMATOID ARTHRITIS
     Route: 058
     Dates: start: 20110211
  2. HUMIRA [Suspect]
     Indication: PSORIASIS

REACTIONS (3)
  - Renal failure chronic [Unknown]
  - Back pain [Unknown]
  - Cardiac operation [Unknown]
